FAERS Safety Report 6409857-6 (Version None)
Quarter: 2009Q4

REPORT INFORMATION
  Report Type: 
  Country: None (occurrence: None)
  Receive Date: 20091022
  Receipt Date: 20091013
  Transmission Date: 20100525
  Serious: Yes (Hospitalization)
  Sender: FDA-Public Use
  Company Number: US-JNJFOC-20091004599

PATIENT
  Sex: Male

DRUGS (4)
  1. TOPAMAX [Suspect]
     Indication: TREMOR
     Dates: start: 20090201, end: 20090714
  2. REBIF [Suspect]
     Indication: MULTIPLE SCLEROSIS
     Dates: start: 20060107, end: 20090714
  3. CALCIUM SANDOZ [Concomitant]
  4. MULTI-VITAMINS [Concomitant]

REACTIONS (8)
  - ALANINE AMINOTRANSFERASE INCREASED [None]
  - AMMONIA INCREASED [None]
  - ASPARTATE AMINOTRANSFERASE INCREASED [None]
  - DELIRIUM [None]
  - ENCEPHALOPATHY [None]
  - HEPATIC ENZYME INCREASED [None]
  - HYPERTENSION [None]
  - PYREXIA [None]
